FAERS Safety Report 10689851 (Version 1)
Quarter: 2015Q1

REPORT INFORMATION
  Report Type: Spontaneous
  Country: US (occurrence: None)
  Receive Date: 20150102
  Receipt Date: 20150102
  Transmission Date: 20150720
  Serious: Yes (Life-Threatening, Hospitalization, Disabling)
  Sender: FDA-Public Use
  Company Number: None

PATIENT
  Age: 59 Year
  Sex: Male
  Weight: 69.2 kg

DRUGS (17)
  1. FOLIC ACID. [Concomitant]
     Active Substance: FOLIC ACID
  2. ACYCLOVIR (ZOVIRAX) [Concomitant]
  3. IBRUTINIB (IMBRUVICA) [Concomitant]
  4. CHLORPHENIRAMINE-HYDROCODONE (TUSSIONEX) [Concomitant]
  5. ALLOPURINOL (ZYLOPRIM) [Concomitant]
  6. IBRUTINIB 140 MG PHARMACYCLICS/JANSSEN [Suspect]
     Active Substance: IBRUTINIB
     Indication: CHRONIC LYMPHOCYTIC LEUKAEMIA
     Dosage: 3 PILLS
     Route: 048
  7. K-DUR [Concomitant]
     Active Substance: POTASSIUM CHLORIDE
  8. DOXAZOSIN (CARDURA) [Concomitant]
  9. CYANOCOBALAMIN (VITAMIN B-12) [Concomitant]
  10. GENTAMICIN (GARAMYCIN OPHTHALMIC) [Concomitant]
  11. FUROSEMIDE (LASIX) [Concomitant]
  12. OXYCODONE [Concomitant]
     Active Substance: OXYCODONE
  13. DEXTROMETHORPHAN HBR [Concomitant]
     Active Substance: DEXTROMETHORPHAN HYDROBROMIDE
  14. TRAMADOL (ULTRAM) [Concomitant]
  15. RIVAROXABAN (XARELTO) [Concomitant]
  16. NAPROXEN SODIUM (ALEVE PO) [Concomitant]
  17. PV W-0 CAL/FERROUS FUMARATE/FA (M-VIT P0) [Concomitant]

REACTIONS (1)
  - Acute kidney injury [None]

NARRATIVE: CASE EVENT DATE: 20141228
